FAERS Safety Report 13566224 (Version 1)
Quarter: 2017Q2

REPORT INFORMATION
  Report Type: Spontaneous
  Country: US (occurrence: US)
  Receive Date: 20170519
  Receipt Date: 20170519
  Transmission Date: 20170830
  Serious: No
  Sender: FDA-Public Use
  Company Number: None

PATIENT
  Age: 96 Year
  Sex: Female

DRUGS (1)
  1. LORAZEPAM. [Suspect]
     Active Substance: LORAZEPAM
     Indication: ANXIETY
     Dosage: ?          OTHER FREQUENCY:EVERY 4 HOURS;?
     Dates: start: 20170424

REACTIONS (1)
  - Product dropper issue [None]

NARRATIVE: CASE EVENT DATE: 20170519
